FAERS Safety Report 21129337 (Version 1)
Quarter: 2022Q3

REPORT INFORMATION
  Report Type: Spontaneous
  Country: US (occurrence: US)
  Receive Date: 20220725
  Receipt Date: 20220725
  Transmission Date: 20221026
  Serious: No
  Sender: FDA-Public Use
  Company Number: US-AMGEN-USASP2022124003

PATIENT
  Sex: Male

DRUGS (3)
  1. OTEZLA [Suspect]
     Active Substance: APREMILAST
     Indication: Psoriasis
     Dosage: 30 MILLIGRAM, BID (30 MG: TAKE ONE TABLET BY MOUTH EVERY MORNING AND ONE TABLET BY MOUTH EVERY EVENI
     Route: 048
     Dates: start: 20210715
  2. TRIAMCINOLONE ACETONIDE [Concomitant]
     Active Substance: TRIAMCINOLONE ACETONIDE
     Dosage: UNK
  3. Furosemide hup [Concomitant]
     Dosage: 20 MILLIGRAM

REACTIONS (1)
  - Intentional product use issue [Unknown]
